FAERS Safety Report 18674856 (Version 7)
Quarter: 2022Q1

REPORT INFORMATION
  Report Type: Spontaneous
  Country: JP (occurrence: JP)
  Receive Date: 20201229
  Receipt Date: 20220126
  Transmission Date: 20220423
  Serious: Yes (Other)
  Sender: FDA-Public Use
  Company Number: NVSJ2020JP013083

PATIENT
  Age: 84 Year
  Sex: Male
  Weight: 59.5 kg

DRUGS (3)
  1. BEOVU [Suspect]
     Active Substance: BROLUCIZUMAB-DBLL
     Indication: Neovascular age-related macular degeneration
     Dosage: 6 MG, Q2MO
     Route: 031
     Dates: start: 20200608, end: 20200608
  2. BEOVU [Suspect]
     Active Substance: BROLUCIZUMAB-DBLL
     Dosage: 6 MG, Q2MO
     Route: 031
     Dates: start: 20200803, end: 20200803
  3. BEOVU [Suspect]
     Active Substance: BROLUCIZUMAB-DBLL
     Dosage: 6 MG, Q2MO
     Route: 031
     Dates: start: 20200928, end: 20200928

REACTIONS (10)
  - Retinal vasculitis [Recovering/Resolving]
  - Retinal perivascular sheathing [Recovering/Resolving]
  - Visual acuity reduced [Unknown]
  - Retinal vascular disorder [Unknown]
  - Neovascular age-related macular degeneration [Unknown]
  - Disease progression [Unknown]
  - Serous retinal detachment [Recovered/Resolved]
  - Vitritis [Unknown]
  - Ciliary hyperaemia [Unknown]
  - Vitreous floaters [Recovered/Resolved]

NARRATIVE: CASE EVENT DATE: 20201006
